FAERS Safety Report 7766028-9 (Version None)
Quarter: 2011Q3

REPORT INFORMATION
  Report Type: 
  Country: None (occurrence: None)
  Receive Date: 20110921
  Receipt Date: 20110906
  Transmission Date: 20111222
  Serious: Yes (Other)
  Sender: FDA-Public Use
  Company Number: AU-WATSON-2011-14829

PATIENT
  Age: 58 Year
  Sex: Female

DRUGS (2)
  1. CARBOPLATIN [Suspect]
     Indication: ENDOMETRIAL CANCER METASTATIC
     Dosage: 600 MG, UNK
     Route: 042
  2. PACLITAXEL [Suspect]
     Indication: ENDOMETRIAL CANCER METASTATIC
     Dosage: 175 MG/M2, UNK (320 MG)
     Route: 042

REACTIONS (2)
  - STAPHYLOCOCCAL INFECTION [None]
  - PYOMYOSITIS [None]
